FAERS Safety Report 9638359 (Version 2)
Quarter: 2013Q4

REPORT INFORMATION
  Report Type: Spontaneous
  Country: JP (occurrence: JP)
  Receive Date: 20131022
  Receipt Date: 20131029
  Transmission Date: 20140711
  Serious: Yes (Hospitalization)
  Sender: FDA-Public Use
  Company Number: JP-GLAXOSMITHKLINE-B0929252A

PATIENT
  Age: 77 Year
  Sex: Male
  Weight: 65 kg

DRUGS (8)
  1. ALENDRONATE SODIUM [Concomitant]
     Dosage: 35MG PER DAY
     Route: 048
  2. AMLODIPINE [Concomitant]
     Dosage: 10MG PER DAY
     Route: 048
  3. ENALAPRIL MALEATE [Concomitant]
     Dosage: 5MG PER DAY
     Route: 048
  4. UNKNOWN DRUG [Concomitant]
     Dosage: 100MG PER DAY
     Route: 048
  5. OMEPRAZOLE [Concomitant]
     Dosage: 20MG PER DAY
     Route: 048
  6. VALTREX [Suspect]
     Indication: HERPES ZOSTER
     Dosage: 3000MG THREE TIMES PER DAY
     Route: 048
     Dates: start: 20130927, end: 20131003
  7. PREDNISOLONE [Concomitant]
     Dosage: 8MG PER DAY
     Route: 048
  8. CALFINA [Concomitant]
     Dosage: .5MCG PER DAY
     Route: 048

REACTIONS (4)
  - Renal impairment [Recovering/Resolving]
  - Renal failure acute [Recovering/Resolving]
  - Nausea [Recovering/Resolving]
  - Decreased appetite [Recovering/Resolving]
